FAERS Safety Report 8932064 (Version 1)
Quarter: 2012Q4

REPORT INFORMATION
  Report Type: 
  Country: CO (occurrence: CO)
  Receive Date: 20121128
  Receipt Date: 20121128
  Transmission Date: 20130627
  Serious: Yes (Death)
  Sender: FDA-Public Use
  Company Number: CO-JNJFOC-20121112073

PATIENT
  Age: 12 Month
  Sex: Male

DRUGS (1)
  1. TOPAMAC [Suspect]
     Indication: EPILEPSY
     Route: 048
     Dates: start: 20110504

REACTIONS (2)
  - Respiratory arrest [Fatal]
  - Drug administered to patient of inappropriate age [Unknown]
